FAERS Safety Report 9352995 (Version 3)
Quarter: 2013Q4

REPORT INFORMATION
  Report Type: Report from Study
  Country: BE (occurrence: BE)
  Receive Date: 20130618
  Receipt Date: 20131203
  Transmission Date: 20140711
  Serious: Yes (Other)
  Sender: FDA-Public Use
  Company Number: BE-009507513-1306BEL006898

PATIENT
  Sex: 0

DRUGS (12)
  1. RIBAVIRIN [Suspect]
     Indication: HEPATITIS C
     Dosage: 400 MG, QD, WEEK 0
  2. RIBAVIRIN [Suspect]
     Dosage: 200 MG, QD, WEEK 4
  3. RIBAVIRIN [Suspect]
     Dosage: 200 MG, QD, WEEK 8
  4. RIBAVIRIN [Suspect]
     Dosage: 200 MG, QD, WEEK 16
  5. RIBAVIRIN [Suspect]
     Dosage: UNK
  6. BOCEPREVIR [Suspect]
     Indication: HEPATITIS C
     Dosage: UNK
  7. PEGINTERFERON ALFA-2A [Suspect]
     Indication: HEPATITIS C
     Dosage: UNK
  8. TACROLIMUS [Concomitant]
     Indication: PROPHYLAXIS AGAINST TRANSPLANT REJECTION
     Dosage: 1 MG, QD
  9. TACROLIMUS [Concomitant]
     Dosage: 0.5 MG, QD
  10. TACROLIMUS [Concomitant]
     Dosage: 0.75 MG, QD
  11. TACROLIMUS [Concomitant]
     Dosage: 2 MG, QD
  12. MYCOPHENOLATE MOFETIL [Concomitant]
     Indication: PROPHYLAXIS AGAINST TRANSPLANT REJECTION

REACTIONS (1)
  - Anaemia [Recovering/Resolving]
